FAERS Safety Report 16238900 (Version 3)
Quarter: 2019Q3

REPORT INFORMATION
  Report Type: Report from Study
  Country: US (occurrence: US)
  Receive Date: 20190425
  Receipt Date: 20190711
  Transmission Date: 20191004
  Serious: No
  Sender: FDA-Public Use
  Company Number: US-SA-2019SA111053

PATIENT
  Age: 55 Year
  Sex: Female

DRUGS (1)
  1. DUPILUMAB [Suspect]
     Active Substance: DUPILUMAB
     Indication: ASTHMA
     Dosage: 600 MG, 1X
     Route: 058
     Dates: start: 20190412, end: 20190412

REACTIONS (3)
  - Rash [Unknown]
  - Lip blister [Unknown]
  - Blister [Unknown]

NARRATIVE: CASE EVENT DATE: 20190412
